FAERS Safety Report 4870103-6 (Version None)
Quarter: 2005Q4

REPORT INFORMATION
  Report Type: 
  Country: None (occurrence: None)
  Receive Date: 20051229
  Receipt Date: 20051229
  Transmission Date: 20060501
  Serious: Yes (Hospitalization)
  Sender: FDA-Public Use
  Company Number: None

PATIENT
  Age: 80 Year
  Sex: Male
  Weight: 87.0906 kg

DRUGS (1)
  1. BACTRIM DS [Suspect]
     Indication: URINARY TRACT INFECTION
     Dosage: 1 TABLET   BID   PO
     Route: 048
     Dates: start: 20050908, end: 20050915

REACTIONS (3)
  - BLOOD POTASSIUM INCREASED [None]
  - CHEST PAIN [None]
  - DYSPNOEA [None]
